FAERS Safety Report 7260380-9 (Version None)
Quarter: 2011Q1

REPORT INFORMATION
  Report Type: 
  Country: None (occurrence: None)
  Receive Date: 20110130
  Receipt Date: 20101019
  Transmission Date: 20110831
  Serious: No
  Sender: FDA-Public Use
  Company Number: US-ABBOTT-10P-163-0679666-00

PATIENT
  Age: 20 Year
  Sex: Female

DRUGS (2)
  1. HUMIRA [Suspect]
     Indication: CROHN'S DISEASE
     Dates: start: 20100701
  2. AZATHIOPRINE [Concomitant]
     Indication: CROHN'S DISEASE

REACTIONS (3)
  - CONFUSIONAL STATE [None]
  - MENTAL IMPAIRMENT [None]
  - AMNESIA [None]
